FAERS Safety Report 5917539-X (Version None)
Quarter: 2008Q4

REPORT INFORMATION
  Report Type: 
  Country: None (occurrence: None)
  Receive Date: 20081010
  Receipt Date: 20081010
  Transmission Date: 20090506
  Serious: Yes (Other)
  Sender: FDA-Public Use
  Company Number: None

PATIENT
  Age: 8 Year
  Sex: Female
  Weight: 36.2878 kg

DRUGS (1)
  1. SINGULAIR [Suspect]
     Indication: ASTHMA
     Dosage: 1 TABLET EVERY DAY PO
     Route: 048
     Dates: start: 20061010, end: 20080810

REACTIONS (6)
  - ABNORMAL BEHAVIOUR [None]
  - ANHEDONIA [None]
  - ANXIETY [None]
  - EDUCATIONAL PROBLEM [None]
  - INCREASED APPETITE [None]
  - MOOD SWINGS [None]
